FAERS Safety Report 8141335-9 (Version None)
Quarter: 2012Q1

REPORT INFORMATION
  Report Type: 
  Country: None (occurrence: None)
  Receive Date: 20120216
  Receipt Date: 20120207
  Transmission Date: 20120608
  Serious: No
  Sender: FDA-Public Use
  Company Number: US-ASTRAZENECA-2011SE62988

PATIENT
  Age: 80 Year
  Sex: Female

DRUGS (2)
  1. TOPROL-XL [Concomitant]
     Route: 048
  2. NEXIUM [Suspect]
     Route: 048

REACTIONS (1)
  - DRUG DOSE OMISSION [None]
